FAERS Safety Report 4664428-7 (Version None)
Quarter: 2005Q2

REPORT INFORMATION
  Report Type: 
  Country: None (occurrence: None)
  Receive Date: 20050516
  Receipt Date: 20050516
  Transmission Date: 20051028
  Serious: Yes (Other)
  Sender: FDA-Public Use
  Company Number: None

PATIENT
  Age: 81 Year
  Sex: Male
  Weight: 90 kg

DRUGS (1)
  1. BRIMONIDINE 0.2% [Suspect]
     Indication: GLAUCOMA
     Dosage: 1 DROP BOTH EYES BID
     Route: 047
     Dates: start: 20050213, end: 20050307

REACTIONS (2)
  - EYE PRURITUS [None]
  - LACRIMATION INCREASED [None]
